FAERS Safety Report 6495845-0 (Version None)
Quarter: 2009Q4

REPORT INFORMATION
  Report Type: 
  Country: None (occurrence: None)
  Receive Date: 20091214
  Receipt Date: 20090819
  Transmission Date: 20100525
  Serious: No
  Sender: FDA-Public Use
  Company Number: US-BRISTOL-MYERS SQUIBB COMPANY-14747984

PATIENT

DRUGS (3)
  1. ABILIFY [Suspect]
     Indication: MAJOR DEPRESSION
     Dates: start: 20030101, end: 20070901
  2. ABILIFY [Suspect]
     Indication: ANXIETY
     Dates: start: 20030101, end: 20070901
  3. ZYPREXA [Concomitant]
     Dates: start: 20010101, end: 20030101

REACTIONS (2)
  - BURNING MOUTH SYNDROME [None]
  - TARDIVE DYSKINESIA [None]
